FAERS Safety Report 9225749 (Version 1)
Quarter: 2013Q2

REPORT INFORMATION
  Report Type: Spontaneous
  Country: FR (occurrence: FR)
  Receive Date: 20130411
  Receipt Date: 20130411
  Transmission Date: 20140414
  Serious: Yes (Hospitalization)
  Sender: FDA-Public Use
  Company Number: FR-INCYTE CORPORATION-2013IN000653

PATIENT
  Age: 71 Year
  Sex: Female

DRUGS (7)
  1. JAKAVI [Suspect]
     Indication: SPLENOMEGALY
     Dosage: 30 MG, BID
     Route: 048
     Dates: start: 20120518
  2. CORTICOSTEROID NOS [Concomitant]
     Dosage: UNK
     Dates: end: 201211
  3. HYDROCORTISONE [Concomitant]
     Dosage: UNK
     Dates: start: 201211
  4. EXJADE [Concomitant]
  5. ASPEGIC [Concomitant]
  6. INEXIUM/ESOMEPRAZOLE MAGNESIUM [Concomitant]
  7. CACIT D3 [Concomitant]

REACTIONS (1)
  - Eye infection toxoplasmal [Not Recovered/Not Resolved]
